FAERS Safety Report 8951097 (Version 2)
Quarter: 2012Q4

REPORT INFORMATION
  Report Type: 
  Country: US (occurrence: US)
  Receive Date: 20121207
  Receipt Date: 20121219
  Transmission Date: 20130627
  Serious: Yes (Hospitalization)
  Sender: FDA-Public Use
  Company Number: US-PFIZER INC-2012297796

PATIENT
  Age: 65 Year
  Sex: Female
  Weight: 67 kg

DRUGS (6)
  1. TOFACITINIB CITRATE [Suspect]
     Indication: RA
     Dosage: 5 mg, 2x/day
     Route: 048
     Dates: start: 20090505
  2. FOLIC ACID [Concomitant]
     Indication: SUPPLEMENTATION THERAPY
     Dosage: 1x/day
     Route: 048
     Dates: start: 1999
  3. CALCIUM [Concomitant]
     Indication: SUPPLEMENTATION THERAPY
     Dosage: 1x/day
     Route: 048
     Dates: start: 1999
  4. PREDNISONE [Concomitant]
     Indication: RA
     Dosage: 1x/day
     Route: 048
     Dates: start: 20100726
  5. HYDROCHLOROTHIAZIDE [Concomitant]
     Indication: HYPERTENSION
     Dosage: 1x/day
     Route: 048
     Dates: start: 20110801
  6. ALENDRONATE [Concomitant]
     Indication: OSTEOPOROSIS
     Dosage: 35 mg, weekly
     Route: 048
     Dates: start: 201203

REACTIONS (1)
  - Chest pain [Recovered/Resolved with Sequelae]
